FAERS Safety Report 9116625 (Version 1)
Quarter: 2013Q1

REPORT INFORMATION
  Report Type: Spontaneous
  Country: US (occurrence: US)
  Receive Date: 20130225
  Receipt Date: 20130225
  Transmission Date: 20140127
  Serious: Yes (Other)
  Sender: FDA-Public Use
  Company Number: US-ASTRAZENECA-2013SE10642

PATIENT
  Age: 67 Year
  Sex: Female
  Weight: 80.7 kg

DRUGS (10)
  1. TOPROL XL [Suspect]
     Indication: CARDIAC DISORDER
     Dosage: GENERIC FORM
     Route: 048
  2. TOPROL XL [Suspect]
     Indication: CARDIAC PACEMAKER INSERTION
     Dosage: GENERIC FORM
     Route: 048
  3. TOPROL XL [Suspect]
     Indication: CARDIAC DISORDER
     Route: 048
  4. TOPROL XL [Suspect]
     Indication: CARDIAC PACEMAKER INSERTION
     Route: 048
  5. TOPROL XL [Suspect]
     Indication: CARDIAC DISORDER
     Route: 048
  6. TOPROL XL [Suspect]
     Indication: CARDIAC PACEMAKER INSERTION
     Route: 048
  7. PRILOSEC OTC [Suspect]
     Indication: ABDOMINAL DISCOMFORT
     Route: 048
  8. ECOTRIN [Concomitant]
     Indication: CARDIAC DISORDER
     Route: 048
  9. EDARBI [Concomitant]
     Indication: BLOOD PRESSURE
     Route: 048
  10. CHLOROTHIAZIDE [Concomitant]
     Indication: BLOOD PRESSURE
     Route: 048

REACTIONS (6)
  - Breast cancer female [Unknown]
  - Cardiac disorder [Unknown]
  - Arrhythmia [Unknown]
  - Asthenia [Unknown]
  - Palpitations [Unknown]
  - Drug ineffective [Unknown]
